FAERS Safety Report 4555619-4 (Version None)
Quarter: 2005Q1

REPORT INFORMATION
  Report Type: 
  Country: None (occurrence: None)
  Receive Date: 20050118
  Receipt Date: 20050118
  Transmission Date: 20050727
  Serious: No
  Sender: FDA-Public Use
  Company Number: None

PATIENT
  Age: 21 Year
  Sex: Female

DRUGS (4)
  1. LEVOXYL [Suspect]
     Indication: HYPOTHYROIDISM
     Dosage: 1 QD
     Dates: start: 20040101
  2. LEVOXYL [Suspect]
     Indication: HYPOTHYROIDISM
     Dosage: 1 QD
     Dates: start: 20050109
  3. TESTIM [Concomitant]
  4. PAXIL CR [Concomitant]

REACTIONS (4)
  - ANOREXIA [None]
  - ASTHENIA [None]
  - DECREASED APPETITE [None]
  - PHARMACEUTICAL PRODUCT COMPLAINT [None]
